FAERS Safety Report 6438163-9 (Version None)
Quarter: 2009Q4

REPORT INFORMATION
  Report Type: 
  Country: None (occurrence: None)
  Receive Date: 20091112
  Receipt Date: 20091106
  Transmission Date: 20100525
  Serious: Yes (Hospitalization, Other)
  Sender: FDA-Public Use
  Company Number: US-ABBOTT-09P-163-0607317-00

PATIENT
  Sex: Female

DRUGS (2)
  1. HUMIRA [Suspect]
     Indication: CROHN'S DISEASE
     Route: 058
     Dates: start: 20080801, end: 20090901
  2. DIOVAN [Concomitant]
     Indication: HYPERTENSION
     Dosage: DAILY

REACTIONS (2)
  - CROHN'S DISEASE [None]
  - FISTULA [None]
